FAERS Safety Report 20460293 (Version 1)
Quarter: 2022Q1

REPORT INFORMATION
  Report Type: Spontaneous
  Country: GB (occurrence: GB)
  Receive Date: 20220211
  Receipt Date: 20220211
  Transmission Date: 20220423
  Serious: No
  Sender: FDA-Public Use
  Company Number: None

PATIENT

DRUGS (12)
  1. CEPHALEXIN [Suspect]
     Active Substance: CEPHALEXIN
     Indication: Urinary tract infection
     Dosage: 500 MILLIGRAM
     Route: 048
     Dates: start: 20210426, end: 20210427
  2. AMLODIPINE [Concomitant]
     Active Substance: AMLODIPINE BESYLATE
     Indication: Ill-defined disorder
     Dosage: UNK
     Route: 065
  3. CITALOPRAM [Concomitant]
     Active Substance: CITALOPRAM HYDROBROMIDE
     Indication: Ill-defined disorder
     Dosage: UNK
     Route: 065
  4. DICLOFENAC [Concomitant]
     Active Substance: DICLOFENAC
     Indication: Ill-defined disorder
     Dosage: UNK
     Route: 065
  5. COLGATE DURAPHAT [Concomitant]
     Active Substance: SODIUM FLUORIDE
     Indication: Ill-defined disorder
     Dosage: UNK
     Route: 065
  6. ESOMEPRAZOLE [Concomitant]
     Active Substance: ESOMEPRAZOLE
     Indication: Ill-defined disorder
     Dosage: UNK
     Route: 065
  7. LACTULOSE [Concomitant]
     Active Substance: LACTULOSE
     Indication: Ill-defined disorder
     Dosage: UNK
     Route: 065
  8. MEMANTINE [Concomitant]
     Active Substance: MEMANTINE
     Indication: Ill-defined disorder
     Dosage: UNK
     Route: 065
  9. MOVICOL [Concomitant]
     Active Substance: POLYETHYLENE GLYCOL 3350\POTASSIUM CHLORIDE\SODIUM BICARBONATE\SODIUM CHLORIDE
     Indication: Ill-defined disorder
     Dosage: UNK
     Route: 065
  10. ACETAMINOPHEN [Concomitant]
     Active Substance: ACETAMINOPHEN
     Indication: Ill-defined disorder
     Dosage: UNK
     Route: 065
  11. RIVASTIGMINE [Concomitant]
     Active Substance: RIVASTIGMINE
     Indication: Ill-defined disorder
     Dosage: UNK
     Route: 065
  12. SIMVASTATIN [Concomitant]
     Active Substance: SIMVASTATIN
     Indication: Ill-defined disorder
     Dosage: UNK
     Route: 065

REACTIONS (3)
  - Blister [Recovered/Resolved]
  - Peripheral swelling [Recovered/Resolved]
  - Erythema [Recovered/Resolved]

NARRATIVE: CASE EVENT DATE: 20210428
